FAERS Safety Report 16473198 (Version 1)
Quarter: 2019Q2

REPORT INFORMATION
  Report Type: Spontaneous
  Country: US (occurrence: US)
  Receive Date: 20190515
  Receipt Date: 20190515
  Transmission Date: 20190711
  Serious: Yes (Other)
  Sender: FDA-Public Use
  Company Number: None

PATIENT
  Age: 64 Year
  Sex: Female
  Weight: 52.16 kg

DRUGS (5)
  1. LUMIGAN [Concomitant]
     Active Substance: BIMATOPROST
  2. TIMOLOL MALEATE. [Concomitant]
     Active Substance: TIMOLOL MALEATE
  3. DORZOLAMIDE HCL [Concomitant]
     Active Substance: DORZOLAMIDE HYDROCHLORIDE
  4. RHOPRESSA [Suspect]
     Active Substance: NETARSUDIL MESYLATE
     Indication: GLAUCOMA
     Dosage: ?          QUANTITY:1 DF DOSAGE FORM;?
     Route: 047
     Dates: start: 20181003, end: 20181005
  5. CENTRUM ADULT MULTI GUMMIES [Concomitant]

REACTIONS (4)
  - Dry eye [None]
  - Vision blurred [None]
  - Conjunctival hyperaemia [None]
  - Lacrimation increased [None]

NARRATIVE: CASE EVENT DATE: 20181003
